FAERS Safety Report 10662424 (Version 3)
Quarter: 2015Q1

REPORT INFORMATION
  Report Type: Spontaneous
  Country: DE (occurrence: JP)
  Receive Date: 20141218
  Receipt Date: 20150122
  Transmission Date: 20150720
  Serious: Yes (Life-Threatening, Hospitalization)
  Sender: FDA-Public Use
  Company Number: JP-BRACCO-008559

PATIENT
  Age: 72 Year
  Sex: Female
  Weight: 39 kg

DRUGS (7)
  1. BAYASPIRIN [Concomitant]
     Active Substance: ASPIRIN
  2. OMEPRAZOLE. [Concomitant]
     Active Substance: OMEPRAZOLE
  3. ARTIST [Concomitant]
     Active Substance: CARVEDILOL
  4. NICORANDIL [Concomitant]
     Active Substance: NICORANDIL
  5. BLOPRESS [Concomitant]
     Active Substance: CANDESARTAN CILEXETIL
  6. CRESTOR [Concomitant]
     Active Substance: ROSUVASTATIN CALCIUM
  7. IOPAMIRON [Suspect]
     Active Substance: IOPAMIDOL
     Indication: ARTERIOGRAM CORONARY
     Route: 022
     Dates: start: 20141113, end: 20141113

REACTIONS (3)
  - Asthma [Recovered/Resolved]
  - Contrast media allergy [Recovered/Resolved]
  - Stress cardiomyopathy [Recovering/Resolving]

NARRATIVE: CASE EVENT DATE: 20141113
